FAERS Safety Report 9771277 (Version 2)
Quarter: 2013Q4

REPORT INFORMATION
  Report Type: Spontaneous
  Country: US (occurrence: US)
  Receive Date: 20131218
  Receipt Date: 20131218
  Transmission Date: 20140711
  Serious: Yes (Other)
  Sender: FDA-Public Use
  Company Number: US-GILEAD-2013-0084601

PATIENT
  Age: 67 Year
  Sex: Male

DRUGS (5)
  1. LETAIRIS [Suspect]
     Indication: PULMONARY HYPERTENSION
     Dosage: 5 MG, UNK
     Route: 048
     Dates: start: 20130923, end: 20130930
  2. LETAIRIS [Suspect]
     Indication: LUNG DISORDER
  3. ASA [Concomitant]
  4. NITROSTAT [Concomitant]
  5. VENTOLIN                           /00139501/ [Concomitant]

REACTIONS (6)
  - Cardiac failure [Unknown]
  - Pulmonary arterial pressure increased [Unknown]
  - Pulmonary arterial pressure decreased [Recovered/Resolved]
  - Exercise tolerance decreased [Unknown]
  - Dyspnoea [Recovered/Resolved]
  - Fatigue [Recovered/Resolved]
